FAERS Safety Report 6342893-7 (Version None)
Quarter: 2009Q3

REPORT INFORMATION
  Report Type: 
  Country: None (occurrence: None)
  Receive Date: 20090908
  Receipt Date: 20090826
  Transmission Date: 20100115
  Serious: Yes (Hospitalization)
  Sender: FDA-Public Use
  Company Number: GB-ROCHE-653151

PATIENT
  Age: 73 Year
  Sex: Female

DRUGS (8)
  1. MYCOPHENOLATE MOFETIL [Suspect]
     Indication: DRUG USE FOR UNKNOWN INDICATION
     Route: 048
     Dates: start: 20090610
  2. MYCOPHENOLATE MOFETIL [Suspect]
     Dosage: DRUG WITHDRAWN.
     Route: 048
     Dates: end: 20090807
  3. ADCAL D3 [Concomitant]
  4. ALENDRONIC ACID [Concomitant]
  5. ALENDRONIC ACID [Concomitant]
     Dosage: RECOMMENCED IN AN OUTPATIENT CLINIC A WEEK.
  6. ASPIRIN [Concomitant]
     Dosage: DISCONTINUED.
  7. HYDROXYCHLOROQUINE SULFATE [Concomitant]
  8. PREDNISOLONE [Concomitant]

REACTIONS (6)
  - DIVERTICULUM [None]
  - DIZZINESS [None]
  - ENTEROCOLITIS HAEMORRHAGIC [None]
  - HAEMOGLOBIN DECREASED [None]
  - RECTAL HAEMORRHAGE [None]
  - SYNCOPE [None]
